FAERS Safety Report 9600815 (Version 1)
Quarter: 2013Q4

REPORT INFORMATION
  Report Type: Spontaneous
  Country: US (occurrence: US)
  Receive Date: 20131004
  Receipt Date: 20131004
  Transmission Date: 20140711
  Serious: No
  Sender: FDA-Public Use
  Company Number: US-AMGEN-USASP2013037468

PATIENT
  Age: 28 Year
  Sex: Female
  Weight: 99.77 kg

DRUGS (5)
  1. ENBREL [Suspect]
     Indication: PSORIATIC ARTHROPATHY
     Dosage: 50 MG, 2 TIMES/WK
     Route: 058
     Dates: start: 20130514
  2. ENBREL [Suspect]
     Indication: PSORIASIS
  3. KLONOPIN [Concomitant]
     Dosage: UNK
  4. LAMOTRIGINE [Concomitant]
     Dosage: UNK
  5. LITHIUM [Concomitant]
     Dosage: UNK

REACTIONS (2)
  - Fatigue [Unknown]
  - Tremor [Unknown]
